FAERS Safety Report 11905565 (Version 1)
Quarter: 2016Q1

REPORT INFORMATION
  Report Type: Spontaneous
  Country: BR (occurrence: BR)
  Receive Date: 20160109
  Receipt Date: 20160109
  Transmission Date: 20160526
  Serious: Yes (Other)
  Sender: FDA-Public Use
  Company Number: BR-BRISTOL-MYERS SQUIBB COMPANY-BMS-2015-093181

PATIENT
  Age: 75 Year
  Sex: Female

DRUGS (4)
  1. GLIFAGE XR [Suspect]
     Active Substance: METFORMIN HYDROCHLORIDE
     Indication: DIABETES MELLITUS
     Dosage: 500 MG, QD
     Route: 048
     Dates: start: 2012
  2. PROPRANOLOL HCL [Concomitant]
     Active Substance: PROPRANOLOL HYDROCHLORIDE
     Indication: HYPERTENSION
     Dosage: UNK; 25 MG/40 MG
     Route: 065
     Dates: start: 2012
  3. LEVOTHYROXINE SODIUM. [Suspect]
     Active Substance: LEVOTHYROXINE SODIUM
     Indication: HORMONE LEVEL ABNORMAL
     Dosage: 50 ?G, QD
     Route: 048
     Dates: start: 2012
  4. SINVASTATINA [Suspect]
     Active Substance: SIMVASTATIN
     Indication: BLOOD CHOLESTEROL ABNORMAL
     Dosage: 20 MG, QD
     Route: 048
     Dates: start: 2012

REACTIONS (1)
  - Bone marrow disorder [Unknown]

NARRATIVE: CASE EVENT DATE: 201511
